FAERS Safety Report 15852631 (Version 1)
Quarter: 2019Q1

REPORT INFORMATION
  Report Type: Spontaneous
  Country: FR (occurrence: FR)
  Receive Date: 20190122
  Receipt Date: 20190122
  Transmission Date: 20190417
  Serious: Yes (Hospitalization)
  Sender: FDA-Public Use
  Company Number: FR-LANNETT COMPANY, INC.-FR-2019LAN000078

PATIENT
  Age: 78 Year
  Sex: Male

DRUGS (6)
  1. CEFTAZIDIME. [Suspect]
     Active Substance: CEFTAZIDIME
     Indication: CORNEAL ABSCESS
     Dosage: UNK
     Route: 047
     Dates: start: 201506, end: 201506
  2. DIPHENOXYLATE HCL; ATROPINE SULFATE [Suspect]
     Active Substance: ATROPINE SULFATE\DIPHENOXYLATE HYDROCHLORIDE
     Indication: IRIS ADHESIONS
     Dosage: 4 MG/0.4 ML, TID
     Route: 065
     Dates: start: 201506
  3. VANCOMYCIN [Suspect]
     Active Substance: VANCOMYCIN
     Indication: CORNEAL ABSCESS
     Dosage: UNK
     Route: 047
     Dates: start: 201506, end: 201506
  4. CIPROFLOXACIN. [Concomitant]
     Active Substance: CIPROFLOXACIN
     Indication: CORNEAL ABSCESS
     Dosage: UNK UNK, ONCE DAILY
     Route: 061
     Dates: start: 201506
  5. VANCOMYCIN [Suspect]
     Active Substance: VANCOMYCIN
     Dosage: UNK
     Route: 047
     Dates: start: 201506
  6. OFLOXACIN. [Concomitant]
     Active Substance: OFLOXACIN
     Indication: CORNEAL ABSCESS
     Dosage: 200 MG, BID
     Route: 048
     Dates: start: 201506

REACTIONS (2)
  - Toxicity to various agents [Recovering/Resolving]
  - Eye inflammation [Recovering/Resolving]

NARRATIVE: CASE EVENT DATE: 201506
